FAERS Safety Report 8901246 (Version 2)
Quarter: 2013Q3

REPORT INFORMATION
  Report Type: Spontaneous
  Country: US (occurrence: US)
  Receive Date: 20121109
  Receipt Date: 20130927
  Transmission Date: 20140515
  Serious: No
  Sender: FDA-Public Use
  Company Number: US-PFIZER INC-2012276438

PATIENT
  Age: 59 Year
  Sex: Male
  Weight: 79.37 kg

DRUGS (3)
  1. VIAGRA [Suspect]
     Indication: ERECTILE DYSFUNCTION
     Dosage: UNK, AS NEEDED
     Route: 048
     Dates: start: 20121102, end: 20121102
  2. VIAGRA [Suspect]
     Dosage: 25 MG, UNK
  3. SINEMET [Concomitant]
     Dosage: UNK

REACTIONS (1)
  - Drug ineffective [Unknown]
